FAERS Safety Report 5268436-7 (Version None)
Quarter: 2007Q1

REPORT INFORMATION
  Report Type: 
  Country: None (occurrence: None)
  Receive Date: 20070313
  Receipt Date: 20070228
  Transmission Date: 20070707
  Serious: Yes (Other)
  Sender: FDA-Public Use
  Company Number: 2007BI004737

PATIENT
  Age: 42 Year
  Sex: Female

DRUGS (1)
  1. AVONEX [Suspect]
     Indication: MULTIPLE SCLEROSIS
     Dosage: 30 UG; QW; IM
     Route: 030
     Dates: start: 20060901

REACTIONS (11)
  - BLOOD TEST ABNORMAL [None]
  - CELL MARKER [None]
  - CEREBRAL CYST [None]
  - GAIT DISTURBANCE [None]
  - MEMORY IMPAIRMENT [None]
  - MUSCLE SPASMS [None]
  - NAUSEA [None]
  - PAIN [None]
  - PITUITARY TUMOUR BENIGN [None]
  - TUMOUR MARKER INCREASED [None]
  - URINE ANALYSIS ABNORMAL [None]
